FAERS Safety Report 9720966 (Version 2)
Quarter: 2013Q4

REPORT INFORMATION
  Report Type: Spontaneous
  Country: DE (occurrence: DE)
  Receive Date: 20131129
  Receipt Date: 20131129
  Transmission Date: 20140711
  Serious: Yes (Other)
  Sender: FDA-Public Use
  Company Number: DE-SANOFI-AVENTIS-2013SA088355

PATIENT
  Age: 85 Year
  Sex: Female
  Weight: 64 kg

DRUGS (5)
  1. MULTAQ [Suspect]
     Indication: ATRIAL FIBRILLATION
     Route: 048
     Dates: start: 20130818, end: 20130821
  2. MARCUMAR [Concomitant]
     Indication: ATRIAL FIBRILLATION
     Route: 048
  3. CALCIUM/VITAMIN D [Concomitant]
     Indication: OSTEOPOROSIS
     Route: 048
  4. BISOPROLOL [Concomitant]
     Indication: ARRHYTHMIA
     Dosage: STRENGTH: 1.25 MG
     Route: 048
     Dates: start: 1998
  5. MICARDIS [Concomitant]
     Indication: HYPERTENSION
     Dosage: STRENGTH: 80 MG
     Route: 048

REACTIONS (4)
  - Hypertensive crisis [Recovered/Resolved]
  - Prothrombin time shortened [Unknown]
  - Dyspnoea [Unknown]
  - International normalised ratio increased [Unknown]
